FAERS Safety Report 19828993 (Version 1)
Quarter: 2021Q3

REPORT INFORMATION
  Report Type: Spontaneous
  Country: PT (occurrence: PT)
  Receive Date: 20210914
  Receipt Date: 20210914
  Transmission Date: 20211014
  Serious: Yes (Other)
  Sender: FDA-Public Use
  Company Number: PT-MYLANLABS-2021M1061637

PATIENT
  Age: 50 Year
  Sex: Female

DRUGS (5)
  1. FOSCARNET [Concomitant]
     Active Substance: FOSCARNET
     Indication: PARTIAL SEIZURES
     Dosage: UNK
  2. TOPIRAMATE. [Suspect]
     Active Substance: TOPIRAMATE
     Indication: PARTIAL SEIZURES
     Dosage: 300 MILLIGRAM, QD (300 MG, 1D)
  3. LEVETIRACETAM. [Suspect]
     Active Substance: LEVETIRACETAM
     Indication: PARTIAL SEIZURES
     Dosage: 3 GRAM, QD (3 G, 1D (MAXIMUM))
  4. ACICLOVIR [Suspect]
     Active Substance: ACYCLOVIR
     Indication: HERPES SIMPLEX ENCEPHALITIS
     Dosage: 30 MILLIGRAM/KILOGRAM, QD (10 MG/KG, TID)
     Route: 042
  5. VALPROIC ACID. [Suspect]
     Active Substance: VALPROIC ACID
     Indication: PARTIAL SEIZURES
     Dosage: 3 GRAM, QD (3 G, 1D)

REACTIONS (3)
  - Drug resistance [Unknown]
  - Pathogen resistance [Unknown]
  - Drug ineffective [Unknown]
